FAERS Safety Report 6184476-8 (Version None)
Quarter: 2009Q2

REPORT INFORMATION
  Report Type: 
  Country: None (occurrence: None)
  Receive Date: 20090508
  Receipt Date: 20090428
  Transmission Date: 20091009
  Serious: Yes (Hospitalization, Other)
  Sender: FDA-Public Use
  Company Number: US-PFIZER INC-2006101244

PATIENT
  Sex: Male
  Weight: 86.168 kg

DRUGS (7)
  1. DILANTIN-125 [Suspect]
     Indication: GRAND MAL CONVULSION
     Dates: start: 19890101
  2. GEMFIBROZIL [Suspect]
     Indication: BLOOD CHOLESTEROL
     Dosage: 600 MG, 1X/DAY
  3. LAMICTAL [Concomitant]
     Dosage: 25 MG, 2X/DAY
  4. LEXAPRO [Concomitant]
     Dosage: UNK
  5. WELLBUTRIN [Concomitant]
     Dosage: UNK
  6. PROPRANOLOL [Concomitant]
     Dosage: UNK
  7. FLUTICASONE [Concomitant]
     Dosage: UNK
     Route: 045

REACTIONS (2)
  - CHOKING [None]
  - CONVULSION [None]
